FAERS Safety Report 6016844-9 (Version None)
Quarter: 2008Q4

REPORT INFORMATION
  Report Type: 
  Country: None (occurrence: None)
  Receive Date: 20081219
  Receipt Date: 20081212
  Transmission Date: 20090506
  Serious: Yes (Death, Other)
  Sender: FDA-Public Use
  Company Number: ENT 2008-0202

PATIENT
  Age: 74 Year
  Sex: Female

DRUGS (4)
  1. COMTAN [Suspect]
     Dosage: 800 MG
     Route: 048
     Dates: start: 20070201
  2. NIFEDIPINE [Concomitant]
  3. RIVOTRIL [Concomitant]
  4. MADOPAR [Concomitant]

REACTIONS (4)
  - DYSSTASIA [None]
  - MALAISE [None]
  - PRESYNCOPE [None]
  - SUDDEN DEATH [None]
